FAERS Safety Report 8558227-3 (Version None)
Quarter: 2012Q3

REPORT INFORMATION
  Report Type: 
  Country: None (occurrence: None)
  Receive Date: 20120801
  Receipt Date: 20120725
  Transmission Date: 20120928
  Serious: Yes (Hospitalization)
  Sender: FDA-Public Use
  Company Number: PHHO2012GB011191

PATIENT
  Sex: Male
  Weight: 76.9 kg

DRUGS (8)
  1. GABAPENTIN [Suspect]
     Indication: PAIN
     Dosage: 300 MG, BID
     Route: 048
     Dates: start: 20120529, end: 20120723
  2. SODIUM BICARBONATE [Concomitant]
     Dosage: 1.5 G, QD
     Route: 048
     Dates: start: 20120214
  3. BORTEZOMIB [Suspect]
     Indication: MULTIPLE MYELOMA
     Dosage: 2.6 MG, UNK
     Route: 042
     Dates: start: 20120214
  4. GLICLAZIDE [Concomitant]
     Indication: TYPE 2 DIABETES MELLITUS
     Dosage: 5 MG, QD
     Route: 048
     Dates: start: 20111017
  5. DARBEPOETIN ALFA [Concomitant]
     Indication: RENAL DISORDER
     Dosage: 40 UG, BIW
     Route: 042
     Dates: start: 20120210
  6. BHQ880 [Suspect]
     Indication: MULTIPLE MYELOMA
     Dosage: 780 MG, UNK
     Route: 042
     Dates: start: 20120214
  7. DEXAMETHASONE [Suspect]
     Indication: MULTIPLE MYELOMA
     Dosage: 20 MG, UNK
     Route: 048
     Dates: start: 20120214
  8. CITALOPRAM HYDROBROMIDE [Concomitant]
     Indication: ANTIDEPRESSANT THERAPY
     Dosage: 10 MG, QD
     Route: 048
     Dates: start: 20120310

REACTIONS (2)
  - CONFUSIONAL STATE [None]
  - URINARY TRACT INFECTION [None]
